FAERS Safety Report 7315533-8 (Version None)
Quarter: 2011Q1

REPORT INFORMATION
  Report Type: 
  Country: None (occurrence: None)
  Receive Date: 20110119
  Receipt Date: 20101021
  Transmission Date: 20110831
  Serious: Yes (Other)
  Sender: FDA-Public Use
  Company Number: A-NJ2010-40949

PATIENT
  Age: 84 Year
  Sex: Female
  Weight: 66.6 kg

DRUGS (17)
  1. ASPIRIN [Concomitant]
  2. POTASSIUM CHLORIDE [Concomitant]
  3. OXYBUTYNIN [Concomitant]
  4. ZETIA [Concomitant]
  5. VITAMIN B1 TAB [Concomitant]
  6. TRACLEER [Suspect]
     Indication: PULMONARY ARTERIAL HYPERTENSION
     Dosage: 62.5 MG, BID, ORAL
     Route: 048
     Dates: start: 20100513, end: 20100928
  7. TRAVATAN [Concomitant]
  8. CA (CALCIUM GLUBIONATE) [Concomitant]
  9. OCUVITE (ASCORBIC ACID) [Concomitant]
  10. COUMADIN [Concomitant]
  11. RAZADYNE [Concomitant]
  12. METOPROLOL (METOPROLOL) [Concomitant]
  13. PREVACID [Concomitant]
  14. LIDOCAIN (LIDOCAINE HYDROCHLORIDE) [Concomitant]
  15. LASIX [Concomitant]
  16. CYANOCOBALAMIN [Concomitant]
  17. PREDNISONE TAB [Concomitant]

REACTIONS (4)
  - ASPARTATE AMINOTRANSFERASE INCREASED [None]
  - LIVER FUNCTION TEST ABNORMAL [None]
  - ALANINE AMINOTRANSFERASE INCREASED [None]
  - BLOOD ALKALINE PHOSPHATASE INCREASED [None]
